FAERS Safety Report 16044112 (Version 1)
Quarter: 2019Q1

REPORT INFORMATION
  Report Type: Spontaneous
  Country: US (occurrence: US)
  Receive Date: 20190306
  Receipt Date: 20190306
  Transmission Date: 20190418
  Serious: Yes (Other)
  Sender: FDA-Public Use
  Company Number: PHEH2019US010029

PATIENT
  Age: 61 Year
  Sex: Female

DRUGS (1)
  1. GLEEVEC [Suspect]
     Active Substance: IMATINIB MESYLATE
     Indication: CHRONIC MYELOID LEUKAEMIA
     Dosage: 800 MG, QD
     Route: 048
     Dates: start: 2002, end: 20060601

REACTIONS (16)
  - Neuropathy peripheral [Unknown]
  - Diarrhoea [Unknown]
  - Migraine [Unknown]
  - Depression [Unknown]
  - Intervertebral disc protrusion [Unknown]
  - Cough [Unknown]
  - Anxiety disorder [Unknown]
  - Pleural effusion [Unknown]
  - Asthenia [Unknown]
  - Pyrexia [Unknown]
  - Haemothorax [Unknown]
  - Intervertebral disc degeneration [Unknown]
  - Panic attack [Unknown]
  - Normocytic anaemia [Unknown]
  - Bone pain [Unknown]
  - Fatigue [Unknown]

NARRATIVE: CASE EVENT DATE: 20070417
